FAERS Safety Report 8059548-3 (Version None)
Quarter: 2012Q1

REPORT INFORMATION
  Report Type: 
  Country: None (occurrence: None)
  Receive Date: 20120120
  Receipt Date: 20120113
  Transmission Date: 20120608
  Serious: Yes (Death, Other)
  Sender: FDA-Public Use
  Company Number: US-ABBOTT-11P-163-0874308-00

PATIENT
  Age: 28 Year
  Sex: Male
  Weight: 87.622 kg

DRUGS (5)
  1. TRAZODONE HCL [Concomitant]
     Indication: PRODUCT USED FOR UNKNOWN INDICATION
     Dates: start: 20101214
  2. METOPROLOL [Concomitant]
     Indication: PRODUCT USED FOR UNKNOWN INDICATION
     Dates: start: 20101224
  3. EQUATE IBUPROFEN PM [Concomitant]
     Indication: PRODUCT USED FOR UNKNOWN INDICATION
  4. VICODIN [Suspect]
     Indication: PRODUCT USED FOR UNKNOWN INDICATION
  5. CYMBALTA [Concomitant]
     Indication: PRODUCT USED FOR UNKNOWN INDICATION

REACTIONS (15)
  - BLOODY DISCHARGE [None]
  - BRAIN OEDEMA [None]
  - ARTERIOSCLEROSIS [None]
  - UNRESPONSIVE TO STIMULI [None]
  - LIVER DISORDER [None]
  - VOMITING [None]
  - CORONARY ARTERY STENOSIS [None]
  - PULMONARY OEDEMA [None]
  - DRUG DEPENDENCE [None]
  - SKIN STRIAE [None]
  - PULMONARY CONGESTION [None]
  - BRONCHOPNEUMONIA [None]
  - FOAMING AT MOUTH [None]
  - TOXICITY TO VARIOUS AGENTS [None]
  - HEPATIC STEATOSIS [None]
